FAERS Safety Report 15028634 (Version 1)
Quarter: 2018Q2

REPORT INFORMATION
  Report Type: Spontaneous
  Country: AR (occurrence: AR)
  Receive Date: 20180619
  Receipt Date: 20180619
  Transmission Date: 20180711
  Serious: Yes (Other)
  Sender: FDA-Public Use
  Company Number: AR-009507513-1806ARG007340

PATIENT
  Age: 68 Year
  Sex: Male

DRUGS (1)
  1. JANUVIA [Suspect]
     Active Substance: SITAGLIPTIN PHOSPHATE
     Dosage: 100 MG, BID
     Route: 048

REACTIONS (4)
  - Shock hypoglycaemic [Unknown]
  - Prescribed overdose [Unknown]
  - Inappropriate schedule of drug administration [Unknown]
  - Cardiac operation [Unknown]

NARRATIVE: CASE EVENT DATE: 201805
